FAERS Safety Report 19386925 (Version 1)
Quarter: 2021Q2

REPORT INFORMATION
  Report Type: Spontaneous
  Country: US (occurrence: US)
  Receive Date: 20210608
  Receipt Date: 20210608
  Transmission Date: 20210717
  Serious: Yes (Other)
  Sender: FDA-Public Use
  Company Number: US-SA-2021SA188377

PATIENT
  Age: 63 Year
  Sex: Female

DRUGS (1)
  1. DUPIXENT [Suspect]
     Active Substance: DUPILUMAB
     Indication: DERMATITIS CONTACT
     Dosage: 300 MG, QOW
     Route: 058
     Dates: start: 2019

REACTIONS (7)
  - Eye pain [Unknown]
  - Eye movement disorder [Unknown]
  - Unevaluable event [Unknown]
  - Ocular discomfort [Unknown]
  - Dry eye [Unknown]
  - Off label use [Unknown]
  - Photophobia [Unknown]

NARRATIVE: CASE EVENT DATE: 2019
